FAERS Safety Report 6179307-6 (Version None)
Quarter: 2009Q2

REPORT INFORMATION
  Report Type: 
  Country: None (occurrence: None)
  Receive Date: 20090505
  Receipt Date: 20090428
  Transmission Date: 20091009
  Serious: Yes (Other)
  Sender: FDA-Public Use
  Company Number: US-ALLERGAN-0906002US

PATIENT
  Sex: Female
  Weight: 60.771 kg

DRUGS (21)
  1. BOTOX [Suspect]
     Indication: TIC
     Dosage: 145 UNITS, SINGLE
     Route: 030
     Dates: start: 20080730, end: 20080730
  2. BOTOX [Suspect]
     Indication: MEIGE'S SYNDROME
     Dosage: 100 UNITS, SINGLE
     Route: 030
     Dates: start: 20080423, end: 20080423
  3. BOTOX [Suspect]
     Indication: BLEPHAROSPASM
  4. ENALAPRIL [Concomitant]
     Indication: HYPERTENSION
     Dosage: 20 MG, BID
  5. HYDROCHLOROTHIAZIDE [Concomitant]
     Indication: HYPERTENSION
     Dosage: 25 MG, QD
  6. SIMVASTATIN [Concomitant]
     Indication: HYPERLIPIDAEMIA
     Dosage: 20 MG, QD
  7. PREVACID [Concomitant]
     Indication: GASTROOESOPHAGEAL REFLUX DISEASE
     Dosage: 30 MG, QD
  8. ULTRAM [Concomitant]
     Indication: MUSCLE SPASMS
     Dosage: 50 MG, QD
  9. SYNTHROID [Concomitant]
     Indication: HYPOTHYROIDISM
     Dosage: 112 UG, QD
  10. LEXAPRO [Concomitant]
     Indication: DEPRESSION
     Dosage: 20 MG, QD
  11. LEXAPRO [Concomitant]
     Dosage: 30 MG, QD
     Dates: start: 20090415
  12. AMBIEN [Concomitant]
     Dosage: 10 MG, QHS
  13. CYCLOBENZAPRINE [Concomitant]
     Indication: MUSCLE SPASMS
     Dosage: 5-10 MG BID TO TID
  14. ALLEGRA [Concomitant]
     Dosage: 45 MG (1/4 TAB), QD
  15. HYDROXYZINE [Concomitant]
     Indication: PRURITUS
     Dosage: 25 MG 1/2 TAB, PRN SPARINGLY
  16. BACITRACIN [Concomitant]
     Dosage: HS
     Route: 047
  17. BLEPHAMIDE [Concomitant]
     Indication: EYELID PAIN
     Dosage: UNK, PRN SPARINGLY
  18. TIMOLOL MALEATE [Concomitant]
     Indication: GLAUCOMA
     Dosage: AM AND PM
  19. VALTREX [Concomitant]
     Indication: ORAL HERPES
     Dosage: 1 G, 12 HOUR INTERVAL PRN
  20. VALTREX [Concomitant]
     Indication: HERPES ZOSTER
  21. ATIVAN [Concomitant]
     Indication: ANXIETY
     Dosage: 0.5 MG, BID PRN

REACTIONS (2)
  - DYSPHAGIA [None]
  - EYELID PTOSIS [None]
